FAERS Safety Report 9142314 (Version 3)
Quarter: 2013Q2

REPORT INFORMATION
  Report Type: Spontaneous
  Country: FR (occurrence: FR)
  Receive Date: 20130306
  Receipt Date: 20130416
  Transmission Date: 20140414
  Serious: No
  Sender: FDA-Public Use
  Company Number: FR-AMGEN-FRASP2013001704

PATIENT
  Age: 68 Year
  Sex: Female

DRUGS (8)
  1. NEULASTA [Suspect]
     Indication: PROPHYLAXIS
     Dosage: UNK UNK, AFTER FIRST CURE OF CHEMO
     Route: 058
     Dates: start: 201301
  2. CARBOPLATINE [Concomitant]
     Indication: SMALL CELL LUNG CANCER
     Dosage: UNK
  3. VEPESIDE [Concomitant]
     Indication: SMALL CELL LUNG CANCER
     Dosage: UNK
  4. LAMICTAL [Concomitant]
     Indication: CONVULSION
     Dosage: LAMICTAL 200, 1 UNIT, 2 FREQUENCY
     Route: 048
     Dates: start: 2011
  5. LYRICA [Concomitant]
     Indication: PAIN
     Dosage: LYRICA 200, 1 UNIT, 2 FREQUENCY
     Route: 048
  6. DUROGESIC [Concomitant]
     Indication: PAIN
     Dosage: 25 UNIT
     Route: 058
  7. LODOZ [Concomitant]
     Indication: HYPERTENSION
     Dosage: UNK
     Route: 048
  8. PLAVIX [Concomitant]
     Indication: HYPERTENSION
     Dosage: UNK
     Route: 048

REACTIONS (7)
  - Nausea [Unknown]
  - Back pain [Not Recovered/Not Resolved]
  - Overdose [Unknown]
  - Bone pain [Unknown]
  - Platelet count decreased [Unknown]
  - Haematology test abnormal [Unknown]
  - Musculoskeletal pain [Not Recovered/Not Resolved]
